FAERS Safety Report 10459176 (Version 2)
Quarter: 2014Q3

REPORT INFORMATION
  Report Type: Report from Study
  Country: CA (occurrence: CA)
  Receive Date: 20140917
  Receipt Date: 20140917
  Transmission Date: 20150326
  Serious: Yes (Hospitalization)
  Sender: FDA-Public Use
  Company Number: CA-JNJFOC-20140812884

PATIENT
  Age: 24 Year
  Sex: Male
  Weight: 72 kg

DRUGS (5)
  1. ENTOCORT [Concomitant]
     Active Substance: BUDESONIDE
     Dosage: 3 PILLS EVERY NIGHT FOR 2 WEEKS,
     Route: 065
     Dates: start: 20140728
  2. ENTOCORT [Concomitant]
     Active Substance: BUDESONIDE
     Dosage: 1 PILL EVERY NIGHT FOR 2 WEEKS.
     Route: 065
  3. REMICADE [Suspect]
     Active Substance: INFLIXIMAB
     Indication: CROHN^S DISEASE
     Route: 042
  4. ENTOCORT [Concomitant]
     Active Substance: BUDESONIDE
     Dosage: 2 PILLS EVERY NIGHT FOR 2 WEEKS,
     Route: 065
  5. REMICADE [Suspect]
     Active Substance: INFLIXIMAB
     Indication: CROHN^S DISEASE
     Route: 042
     Dates: start: 20140731

REACTIONS (4)
  - Pregnancy of partner [Unknown]
  - Rectal haemorrhage [Recovered/Resolved]
  - Gastrointestinal haemorrhage [Unknown]
  - Faeces discoloured [Unknown]

NARRATIVE: CASE EVENT DATE: 2014
